FAERS Safety Report 21837700 (Version 3)
Quarter: 2023Q1

REPORT INFORMATION
  Report Type: Report from Study
  Country: US (occurrence: US)
  Receive Date: 20230109
  Receipt Date: 20230328
  Transmission Date: 20230418
  Serious: No
  Sender: FDA-Public Use
  Company Number: US-002147023-NVSC2023US003947

PATIENT
  Sex: Male

DRUGS (1)
  1. COSENTYX [Suspect]
     Active Substance: SECUKINUMAB
     Indication: Psoriasis
     Dosage: 75 MG, QW (ONCE WEEKLY FOR 5 WEEKS AND THEN ONCE EVERY 4 WEEKS)
     Route: 058
     Dates: start: 20221023

REACTIONS (3)
  - COVID-19 [Unknown]
  - Nasopharyngitis [Unknown]
  - Influenza [Unknown]
